FAERS Safety Report 9622048 (Version 2)
Quarter: 2013Q4

REPORT INFORMATION
  Report Type: Spontaneous
  Country: US (occurrence: US)
  Receive Date: 20131015
  Receipt Date: 20131226
  Transmission Date: 20140711
  Serious: Yes (Other)
  Sender: FDA-Public Use
  Company Number: US-PFIZER INC-2013292625

PATIENT
  Age: 56 Year
  Sex: Female
  Weight: 96.15 kg

DRUGS (2)
  1. XELJANZ [Suspect]
     Indication: RHEUMATOID ARTHRITIS
     Dosage: 5 MG, 2X/DAY
     Dates: start: 20130904, end: 20131004
  2. WARFARIN [Suspect]
     Indication: ATRIAL FIBRILLATION
     Dosage: UNK

REACTIONS (15)
  - Myocardial infarction [Unknown]
  - Urticaria [Recovered/Resolved]
  - Palpitations [Recovered/Resolved]
  - Migraine [Recovered/Resolved]
  - Extrasystoles [Recovered/Resolved]
  - Arthritis [Unknown]
  - Oropharyngeal pain [Recovered/Resolved]
  - Glossodynia [Not Recovered/Not Resolved]
  - Lactation disorder [Recovered/Resolved]
  - Hormone level abnormal [Recovered/Resolved]
  - Headache [Unknown]
  - Nasal congestion [Recovered/Resolved]
  - Pruritus [Recovered/Resolved]
  - Nausea [Unknown]
  - Malaise [Unknown]
